FAERS Safety Report 5510784-7 (Version None)
Quarter: 2007Q4

REPORT INFORMATION
  Report Type: 
  Country: None (occurrence: None)
  Receive Date: 20071108
  Receipt Date: 20071031
  Transmission Date: 20080405
  Serious: Yes (Other)
  Sender: FDA-Public Use
  Company Number: B0494488A

PATIENT
  Sex: Male

DRUGS (5)
  1. ALKERAN [Suspect]
     Indication: TRANSPLANT
     Dates: start: 20071029, end: 20071029
  2. FLUCONAZOLE [Concomitant]
  3. ONDANSETRON [Concomitant]
     Indication: PREMEDICATION
  4. PREDNISONE TAB [Concomitant]
     Indication: PREMEDICATION
  5. ANZEMET [Concomitant]
     Indication: PREMEDICATION

REACTIONS (3)
  - CONFUSIONAL STATE [None]
  - CONVULSION [None]
  - LOSS OF CONSCIOUSNESS [None]
